FAERS Safety Report 4833475-4 (Version None)
Quarter: 2005Q4

REPORT INFORMATION
  Report Type: 
  Country: None (occurrence: None)
  Receive Date: 20051121
  Receipt Date: 20051103
  Transmission Date: 20060501
  Serious: Yes (Congenital Anomaly)
  Sender: FDA-Public Use
  Company Number: NL-MERCK-0511NLD00005B1

PATIENT
  Sex: Male

DRUGS (6)
  1. PROSCAR [Suspect]
     Indication: HIRSUTISM
     Dates: start: 20030101, end: 20041028
  2. PROSCAR [Suspect]
     Dates: start: 20050101
  3. PROSCAR [Suspect]
     Indication: POLYCYSTIC OVARIES
     Dates: start: 20030101, end: 20041028
  4. PROSCAR [Suspect]
     Dates: start: 20050101
  5. METFORMIN [Concomitant]
     Indication: POLYCYSTIC OVARIES
  6. METHYLDOPA [Concomitant]
     Indication: HYPERTENSION

REACTIONS (2)
  - DRUG EXPOSURE BEFORE PREGNANCY [None]
  - HYPOSPADIAS [None]
